FAERS Safety Report 5888438-7 (Version None)
Quarter: 2008Q3

REPORT INFORMATION
  Report Type: 
  Country: None (occurrence: None)
  Receive Date: 20080917
  Receipt Date: 20080917
  Transmission Date: 20090109
  Serious: Yes (Other)
  Sender: FDA-Public Use
  Company Number: None

PATIENT
  Age: 71 Year
  Sex: Female
  Weight: 56.246 kg

DRUGS (1)
  1. AMLODIPINE BESYLATE [Suspect]
     Indication: BLOOD PRESSURE
     Dosage: 1 ONCE A DAY PO
     Route: 048
     Dates: start: 20080210, end: 20080217

REACTIONS (4)
  - FEAR [None]
  - NERVOUSNESS [None]
  - RESTLESSNESS [None]
  - SUICIDAL IDEATION [None]
